FAERS Safety Report 19591445 (Version 1)
Quarter: 2021Q3

REPORT INFORMATION
  Report Type: Spontaneous
  Country: None (occurrence: None)
  Receive Date: 20210721
  Receipt Date: 20210721
  Transmission Date: 20211014
  Serious: Yes (Other)
  Sender: FDA-Public Use
  Company Number: -ANIPHARMA-2021-VN-000007

PATIENT
  Age: 10 Day
  Sex: Male

DRUGS (3)
  1. ERYTHROMYCIN ETHYLSUCCINATE (NON?SPECIFIC) [Suspect]
     Active Substance: ERYTHROMYCIN ETHYLSUCCINATE
     Indication: PNEUMONIA
  2. AMPICILLIN [Suspect]
     Active Substance: AMPICILLIN
     Indication: PNEUMONIA
  3. CEFOTAXIME [Suspect]
     Active Substance: CEFOTAXIME SODIUM
     Indication: PNEUMONIA

REACTIONS (1)
  - Acute generalised exanthematous pustulosis [Recovered/Resolved]
